FAERS Safety Report 7524429-8 (Version None)
Quarter: 2011Q2

REPORT INFORMATION
  Report Type: 
  Country: None (occurrence: None)
  Receive Date: 20110601
  Receipt Date: 20110601
  Transmission Date: 20111010
  Serious: Yes (Hospitalization)
  Sender: FDA-Public Use
  Company Number: None

PATIENT
  Sex: Female
  Weight: 145 kg

DRUGS (12)
  1. TIKOSYN [Suspect]
     Indication: ATRIAL FIBRILLATION
     Dosage: 500MCG Q12H PO
     Route: 048
     Dates: start: 20110325, end: 20110326
  2. DABIGATRAN [Concomitant]
  3. OMEPRAZOLE [Concomitant]
  4. PREDNISONE [Concomitant]
  5. ACETAMINOPHEN [Concomitant]
  6. PRAMIPEXOLE DIHYDROCHLORIDE [Concomitant]
  7. GABAPENTIN [Concomitant]
  8. INSULIN LISPRO [Concomitant]
  9. BUMEX [Concomitant]
  10. ALLOPURINOL [Concomitant]
  11. METOPROLOL SUCCINATE EXTENDED RELEASE [Concomitant]
  12. NORCO [Concomitant]

REACTIONS (1)
  - TORSADE DE POINTES [None]
